FAERS Safety Report 25420398 (Version 1)
Quarter: 2025Q2

REPORT INFORMATION
  Report Type: Spontaneous
  Country: CA (occurrence: CA)
  Receive Date: 20250610
  Receipt Date: 20250610
  Transmission Date: 20250716
  Serious: Yes (Other)
  Sender: Haleon PLC
  Company Number: CA-HALEON-2246273

PATIENT
  Age: 11 Year
  Sex: Male

DRUGS (3)
  1. ADVIL [Suspect]
     Active Substance: IBUPROFEN
     Indication: Drug provocation test
  2. NAPROXEN [Suspect]
     Active Substance: NAPROXEN
     Indication: Drug provocation test
  3. CELECOXIB [Concomitant]
     Active Substance: CELECOXIB
     Indication: Drug provocation test

REACTIONS (2)
  - Angioedema [Unknown]
  - Off label use [Unknown]
